FAERS Safety Report 5520033-1 (Version None)
Quarter: 2007Q4

REPORT INFORMATION
  Report Type: 
  Country: None (occurrence: None)
  Receive Date: 20071116
  Receipt Date: 20071108
  Transmission Date: 20080405
  Serious: Yes (Other)
  Sender: FDA-Public Use
  Company Number: GB-AMGEN-US252343

PATIENT
  Age: 57 Year
  Sex: Female

DRUGS (5)
  1. ENBREL [Suspect]
     Indication: DRUG USE FOR UNKNOWN INDICATION
     Route: 058
     Dates: start: 20050501, end: 20071013
  2. TRAMADOL [Concomitant]
     Dosage: AS REQUIRED
  3. NAPROXEN [Concomitant]
     Route: 048
  4. CO-CODAMOL [Concomitant]
     Dosage: AS REQUIRED
  5. HYPROMELLOSE [Concomitant]
     Dosage: AS REQUIRED
     Route: 047

REACTIONS (1)
  - RASH [None]
